FAERS Safety Report 9921947 (Version 2)
Quarter: 2014Q1

REPORT INFORMATION
  Report Type: Spontaneous
  Country: US (occurrence: US)
  Receive Date: 20140225
  Receipt Date: 20140321
  Transmission Date: 20141002
  Serious: Yes (Hospitalization)
  Sender: FDA-Public Use
  Company Number: US-LUNDBECK-DKLU1097543

PATIENT
  Age: 8 Year
  Sex: Male

DRUGS (1)
  1. SABRIL (TABLET) [Suspect]
     Indication: CONVULSION
     Route: 048
     Dates: start: 20110107

REACTIONS (2)
  - Pneumonia [Recovered/Resolved]
  - Respiratory failure [Unknown]
